FAERS Safety Report 10430076 (Version 2)
Quarter: 2014Q3

REPORT INFORMATION
  Report Type: Spontaneous
  Country: BR (occurrence: BR)
  Receive Date: 20140904
  Receipt Date: 20140922
  Transmission Date: 20150326
  Serious: Yes (Death, Hospitalization)
  Sender: FDA-Public Use
  Company Number: BR-ACTELION-A-CH2014-104617

PATIENT
  Age: 1 Year
  Sex: Female

DRUGS (1)
  1. ZAVESCA [Suspect]
     Active Substance: MIGLUSTAT
     Indication: TAY-SACHS DISEASE
     Dosage: 30 MG, TID
     Route: 048
     Dates: start: 201407, end: 20140816

REACTIONS (12)
  - Disease progression [Fatal]
  - Somnolence [Fatal]
  - Malnutrition [Fatal]
  - Cardio-respiratory arrest [Fatal]
  - Concomitant disease aggravated [Fatal]
  - Feeding disorder [Fatal]
  - Brain oedema [Fatal]
  - Neurological decompensation [Fatal]
  - Dysphagia [Fatal]
  - Tay-Sachs disease [Fatal]
  - Bronchopneumonia [Unknown]
  - Weight decreased [Fatal]

NARRATIVE: CASE EVENT DATE: 20140816
